FAERS Safety Report 8888735 (Version 2)
Quarter: 2012Q4

REPORT INFORMATION
  Report Type: 
  Country: US (occurrence: US)
  Receive Date: 20121106
  Receipt Date: 20121220
  Transmission Date: 20130627
  Serious: No
  Sender: FDA-Public Use
  Company Number: US-PFIZER INC-2012275142

PATIENT
  Age: 45 Year
  Sex: Female

DRUGS (12)
  1. NEURONTIN [Suspect]
     Dosage: 300 mg, 2x/day
     Route: 048
  2. NEURONTIN [Suspect]
     Dosage: 600 mg, 2x/day
     Route: 048
     Dates: start: 20090515
  3. ZOLOFT [Suspect]
     Dosage: 50 mg, 1x/day (HS)
     Route: 048
     Dates: start: 20090515
  4. TRAMADOL [Concomitant]
     Dosage: 50 mg, UNK
  5. ESTROGENS [Concomitant]
     Dosage: at night
     Route: 048
  6. TOPAMAX [Concomitant]
     Dosage: 25 mg, 1x/day
     Route: 048
  7. TOPROL [Concomitant]
     Dosage: 50 mg, 1x/day
  8. OMEPRAZOLE [Concomitant]
     Dosage: 20 mg, UNK
  9. CYMBALTA [Concomitant]
     Dosage: 60 mg, 1x/day
  10. AZOR [Concomitant]
     Dosage: 5/20, 1x/day
     Route: 048
  11. NEXIUM [Concomitant]
     Dosage: 20 mg in am
     Route: 048
  12. ESTRATEST HS [Concomitant]
     Dosage: 1 mg at night
     Route: 048

REACTIONS (7)
  - Musculoskeletal discomfort [Unknown]
  - Headache [Unknown]
  - Emotional disorder [Unknown]
  - Decreased activity [Unknown]
  - Decreased interest [Unknown]
  - Disturbance in attention [Unknown]
  - Migraine [Unknown]
